FAERS Safety Report 9903093 (Version 2)
Quarter: 2014Q1

REPORT INFORMATION
  Report Type: Spontaneous
  Country: US (occurrence: US)
  Receive Date: 20140217
  Receipt Date: 20140306
  Transmission Date: 20141002
  Serious: Yes (Death, Hospitalization, Other)
  Sender: FDA-Public Use
  Company Number: US-BAXTER-2014BAX006420

PATIENT
  Sex: Male

DRUGS (4)
  1. DIANEAL LOW CALCIUM [Suspect]
     Indication: PERITONEAL DIALYSIS
     Route: 033
     Dates: end: 20140201
  2. DIANEAL LOW CALCIUM [Suspect]
     Indication: PERITONEAL DIALYSIS
     Route: 033
     Dates: end: 20140201
  3. DIANEAL LOW CALCIUM [Suspect]
     Indication: PERITONEAL DIALYSIS
     Route: 033
     Dates: end: 20140201
  4. DIANEAL LOW CALCIUM (ULTRABAG) [Suspect]
     Indication: PERITONEAL DIALYSIS
     Route: 033
     Dates: end: 20140201

REACTIONS (6)
  - Device related infection [Fatal]
  - Sepsis [Fatal]
  - Organ failure [Unknown]
  - General physical health deterioration [Unknown]
  - Peritonitis bacterial [Not Recovered/Not Resolved]
  - Catheter site infection [Unknown]
